FAERS Safety Report 4743826-7 (Version None)
Quarter: 2005Q3

REPORT INFORMATION
  Report Type: 
  Country: None (occurrence: None)
  Receive Date: 20050809
  Receipt Date: 20050728
  Transmission Date: 20060218
  Serious: Yes (Death)
  Sender: FDA-Public Use
  Company Number: 2005104212

PATIENT
  Age: 59 Year
  Sex: Male

DRUGS (4)
  1. SOLU-CORTEF [Suspect]
     Indication: SEPTIC SHOCK
     Dosage: 200 MG (50 MG,4 IN 1 D), INTRAVENOUS
     Route: 042
  2. FLUDROCORTISONE ACETATE [Suspect]
     Indication: ADRENAL INSUFFICIENCY
     Dosage: 50 MCG (50 MCG, 1 IN 1 D), GASTROSTOMY TUBE
  3. FLUDROCORTISONE ACETATE [Suspect]
     Indication: SEPTIC SHOCK
     Dosage: 50 MCG (50 MCG, 1 IN 1 D), GASTROSTOMY TUBE
  4. VALORON N RETARD (TILIDINE, NALOXONE) [Suspect]

REACTIONS (4)
  - BLOOD LACTIC ACID DECREASED [None]
  - BLOOD PRESSURE INCREASED [None]
  - INFECTION [None]
  - PATHOGEN RESISTANCE [None]
